FAERS Safety Report 9505222 (Version 1)
Quarter: 2013Q1

REPORT INFORMATION
  Report Type: Spontaneous
  Country: US (occurrence: None)
  Receive Date: 20130225
  Receipt Date: 20130225
  Transmission Date: 20140127
  Serious: No
  Sender: FDA-Public Use
  Company Number: 367032

PATIENT
  Age: 55 Year
  Sex: Male

DRUGS (3)
  1. VICTOZA [Suspect]
     Indication: DIABETES MELLITUS
     Route: 058
     Dates: start: 20121212
  2. PREDNISONE (PREDNISONE) [Concomitant]
  3. PROGRAF (TACROLIMUS) [Concomitant]

REACTIONS (2)
  - Diarrhoea [None]
  - Blood glucose increased [None]
